FAERS Safety Report 4909218-2 (Version None)
Quarter: 2006Q1

REPORT INFORMATION
  Report Type: 
  Country: None (occurrence: None)
  Receive Date: 20060213
  Receipt Date: 20060206
  Transmission Date: 20060701
  Serious: Yes (Death)
  Sender: FDA-Public Use
  Company Number: PHNU2006SI00851

PATIENT
  Age: 84 Year
  Sex: Male

DRUGS (3)
  1. EXELON [Suspect]
     Indication: DEMENTIA
     Dosage: 3 MG, BID
     Route: 048
     Dates: start: 20060110
  2. PARACETAMOLUM [Concomitant]
     Route: 048
  3. EDEMID [Concomitant]
     Route: 065

REACTIONS (1)
  - DEATH [None]
